FAERS Safety Report 13635644 (Version 2)
Quarter: 2017Q2

REPORT INFORMATION
  Report Type: Report from Study
  Country: NL (occurrence: NL)
  Receive Date: 20170609
  Receipt Date: 20170616
  Transmission Date: 20170830
  Serious: Yes (Other)
  Sender: FDA-Public Use
  Company Number: NL-VIFOR (INTERNATIONAL) INC.-VIT-2017-06264

PATIENT
  Age: 59 Year
  Sex: Male
  Weight: 91.6 kg

DRUGS (37)
  1. NADROPARIN CALCIUM [Concomitant]
     Active Substance: NADROPARIN CALCIUM
     Indication: CHRONIC KIDNEY DISEASE
     Dates: start: 20160706, end: 20160711
  2. NADROPARIN CALCIUM [Concomitant]
     Active Substance: NADROPARIN CALCIUM
     Dates: start: 20161107, end: 20161109
  3. CLOPIDOGREL [Concomitant]
     Active Substance: CLOPIDOGREL BISULFATE
     Indication: CHRONIC KIDNEY DISEASE
     Dates: start: 20170112
  4. ACENOCOUMAROL [Concomitant]
     Active Substance: ACENOCOUMAROL
     Indication: CHRONIC KIDNEY DISEASE
     Dates: start: 20160706, end: 20160711
  5. NADROPARIN CALCIUM [Concomitant]
     Active Substance: NADROPARIN CALCIUM
     Dates: start: 20170113, end: 20170113
  6. DALTEPARIN SODIUM [Concomitant]
     Active Substance: DALTEPARIN SODIUM
     Dates: start: 20160808
  7. ACETYLSALICYLIC ACID [Concomitant]
     Active Substance: ASPIRIN
     Indication: CHRONIC KIDNEY DISEASE
     Dates: start: 20160215, end: 20160727
  8. OMEPRAZOLE. [Concomitant]
     Active Substance: OMEPRAZOLE
     Indication: CHRONIC KIDNEY DISEASE
     Dates: start: 20160609, end: 20160727
  9. PANTOPRAZOLE [Concomitant]
     Active Substance: PANTOPRAZOLE
     Indication: CHRONIC KIDNEY DISEASE
     Dates: start: 20160715, end: 20160721
  10. DALTEPARIN SODIUM [Concomitant]
     Active Substance: DALTEPARIN SODIUM
     Dates: start: 20160801, end: 20160808
  11. ARANESP [Concomitant]
     Active Substance: DARBEPOETIN ALFA
     Dates: start: 20161208, end: 20170109
  12. CALCIUM ACETATE/MAGNESIUM CARBONATE [Concomitant]
     Indication: CHRONIC KIDNEY DISEASE
     Dates: start: 20161114, end: 20161219
  13. VELPHORO [Suspect]
     Active Substance: FERRIC OXYHYDROXIDE
     Route: 048
     Dates: start: 20170208
  14. SEVELAMER CARBONATE. [Concomitant]
     Active Substance: SEVELAMER CARBONATE
     Indication: CHRONIC KIDNEY DISEASE
     Dates: start: 20160411, end: 20160711
  15. SEVELAMER CARBONATE. [Concomitant]
     Active Substance: SEVELAMER CARBONATE
     Dates: start: 20160810, end: 20161219
  16. DALTEPARIN SODIUM [Concomitant]
     Active Substance: DALTEPARIN SODIUM
     Indication: CHRONIC KIDNEY DISEASE
     Dates: start: 20160502, end: 20160729
  17. SEVELAMER CARBONATE. [Concomitant]
     Active Substance: SEVELAMER CARBONATE
     Dates: start: 20160711, end: 20160810
  18. LACTULOSE. [Concomitant]
     Active Substance: LACTULOSE
     Indication: CHRONIC KIDNEY DISEASE
     Dates: start: 20160711, end: 20160715
  19. NADROPARIN CALCIUM [Concomitant]
     Active Substance: NADROPARIN CALCIUM
     Dates: start: 20160711, end: 20160720
  20. ARANESP [Concomitant]
     Active Substance: DARBEPOETIN ALFA
     Indication: CHRONIC KIDNEY DISEASE
     Dates: start: 20170109, end: 20170123
  21. ARANESP [Concomitant]
     Active Substance: DARBEPOETIN ALFA
     Dates: start: 20170123, end: 20170208
  22. SEVELAMER CARBONATE. [Concomitant]
     Active Substance: SEVELAMER CARBONATE
     Dates: start: 20170313
  23. HEPARIN [Concomitant]
     Active Substance: HEPARIN SODIUM
     Dates: start: 20170113, end: 20170113
  24. NADROPARIN CALCIUM [Concomitant]
     Active Substance: NADROPARIN CALCIUM
     Dates: start: 20160718, end: 20160727
  25. CARBASALATE CALCIUM [Concomitant]
     Active Substance: CARBASPIRIN
     Indication: CHRONIC KIDNEY DISEASE
     Dates: start: 20160211, end: 20160711
  26. IRON ISOMALTOSIDE 1000 [Concomitant]
     Active Substance: IRON ISOMALTOSIDE 1000
     Indication: CHRONIC KIDNEY DISEASE
     Dates: start: 20160226, end: 20161005
  27. HEPARIN [Concomitant]
     Active Substance: HEPARIN SODIUM
     Indication: CHRONIC KIDNEY DISEASE
     Dates: start: 20160715, end: 20160718
  28. PANTOPRAZOLE [Concomitant]
     Active Substance: PANTOPRAZOLE
     Dates: start: 20160727, end: 20161111
  29. SODIUM CITRATE. [Concomitant]
     Active Substance: SODIUM CITRATE
     Indication: CHRONIC KIDNEY DISEASE
     Dates: start: 20160222, end: 20161118
  30. SODIUM CITRATE. [Concomitant]
     Active Substance: SODIUM CITRATE
     Dates: start: 20161118
  31. ARANESP [Concomitant]
     Active Substance: DARBEPOETIN ALFA
     Dates: start: 20170208
  32. CINACALCET [Concomitant]
     Active Substance: CINACALCET
     Indication: CHRONIC KIDNEY DISEASE
     Dates: start: 20160411, end: 20170410
  33. VELPHORO [Suspect]
     Active Substance: FERRIC OXYHYDROXIDE
     Indication: HYPERPHOSPHATAEMIA
     Route: 048
     Dates: start: 20161219
  34. VELPHORO [Suspect]
     Active Substance: FERRIC OXYHYDROXIDE
     Route: 048
     Dates: start: 20170112
  35. MACROGOL [Concomitant]
     Active Substance: POLYETHYLENE GLYCOLS
     Indication: CHRONIC KIDNEY DISEASE
     Dates: start: 20160414, end: 20161111
  36. NADROPARIN CALCIUM [Concomitant]
     Active Substance: NADROPARIN CALCIUM
     Dates: start: 20170112, end: 20170114
  37. COLECALCIFEROL [Concomitant]
     Active Substance: CHOLECALCIFEROL
     Indication: CHRONIC KIDNEY DISEASE
     Dates: start: 20170226

REACTIONS (2)
  - Faeces discoloured [Not Recovered/Not Resolved]
  - Gastrointestinal haemorrhage [Not Recovered/Not Resolved]

NARRATIVE: CASE EVENT DATE: 20161219
